FAERS Safety Report 18679587 (Version 1)
Quarter: 2020Q4

REPORT INFORMATION
  Report Type: Spontaneous
  Country: US (occurrence: US)
  Receive Date: 20201230
  Receipt Date: 20201230
  Transmission Date: 20210114
  Serious: No
  Sender: FDA-Public Use
  Company Number: US-JNJFOC-20201248893

PATIENT
  Age: 8 Year
  Sex: Male

DRUGS (10)
  1. REMICADE [Suspect]
     Active Substance: INFLIXIMAB
     Indication: EOSINOPHILIC OESOPHAGITIS
     Route: 042
  2. MEPOLIZUMAB [Concomitant]
     Active Substance: MEPOLIZUMAB
     Indication: EOSINOPHILIC COLITIS
     Route: 065
  3. CETIRIZINE [Concomitant]
     Active Substance: CETIRIZINE HYDROCHLORIDE
     Indication: EOSINOPHILIC COLITIS
     Route: 065
  4. REMICADE [Suspect]
     Active Substance: INFLIXIMAB
     Indication: CROHN^S DISEASE
     Route: 042
  5. PREDNISONE. [Concomitant]
     Active Substance: PREDNISONE
     Indication: CROHN^S DISEASE
  6. TRIAMCINOLONE [Concomitant]
     Active Substance: TRIAMCINOLONE
     Indication: RHINITIS
     Route: 065
  7. PREDNISONE. [Concomitant]
     Active Substance: PREDNISONE
     Indication: EOSINOPHILIC OESOPHAGITIS
     Route: 065
  8. RANITIDINE. [Concomitant]
     Active Substance: RANITIDINE
     Indication: EOSINOPHILIC COLITIS
     Route: 065
  9. CROMOLYN [CROMOGLICIC ACID] [Concomitant]
     Active Substance: CROMOLYN
     Indication: EOSINOPHILIC COLITIS
     Route: 048
  10. FLUTICASONE. [Concomitant]
     Active Substance: FLUTICASONE
     Indication: ASTHMA
     Route: 065

REACTIONS (3)
  - Drug ineffective [Unknown]
  - Product use issue [Unknown]
  - Off label use [Unknown]
